FAERS Safety Report 23355589 (Version 3)
Quarter: 2024Q1

REPORT INFORMATION
  Report Type: Spontaneous
  Country: US (occurrence: US)
  Receive Date: 20240102
  Receipt Date: 20240319
  Transmission Date: 20240409
  Serious: Yes (Hospitalization, Other)
  Sender: FDA-Public Use
  Company Number: US-BRISTOL-MYERS SQUIBB COMPANY-2023-188390

PATIENT
  Age: 69 Year
  Sex: Female

DRUGS (2)
  1. REVLIMID [Suspect]
     Active Substance: LENALIDOMIDE
     Indication: Plasma cell myeloma
     Route: 048
     Dates: start: 20211015
  2. REVLIMID [Suspect]
     Active Substance: LENALIDOMIDE
     Dosage: 1 PO DAILY FOR 21 DAYS THEN OFF 7
     Route: 048

REACTIONS (4)
  - Cataract [Recovered/Resolved]
  - Fall [Recovered/Resolved]
  - Illness [Unknown]
  - Upper respiratory tract infection [Unknown]

NARRATIVE: CASE EVENT DATE: 20231213
